FAERS Safety Report 5780169-7 (Version None)
Quarter: 2008Q2

REPORT INFORMATION
  Report Type: 
  Country: None (occurrence: None)
  Receive Date: 20080620
  Receipt Date: 20080610
  Transmission Date: 20081010
  Serious: Yes (Hospitalization)
  Sender: FDA-Public Use
  Company Number: FR-WYE-H04515308

PATIENT
  Age: 77 Year
  Sex: Female

DRUGS (7)
  1. CORDARONE [Suspect]
     Indication: ATRIAL FIBRILLATION
     Route: 042
     Dates: start: 20080329, end: 20080402
  2. ACETAMINOPHEN [Concomitant]
     Dosage: UNKNOWN
     Dates: start: 20080328
  3. ASPIRIN [Concomitant]
     Dosage: UNKNOWN
     Dates: start: 20080328
  4. HUMALOG [Concomitant]
     Indication: INSULIN-REQUIRING TYPE 2 DIABETES MELLITUS
  5. DETENSIEL [Concomitant]
     Indication: HYPERTENSION
     Dosage: UNKNOWN
     Route: 048
  6. TRAMADOL HCL [Concomitant]
     Dosage: UNKNOWN
     Route: 048
     Dates: start: 20080328
  7. NEORAL [Concomitant]
     Indication: RENAL FAILURE
     Dosage: UNKNOWN
     Route: 048

REACTIONS (1)
  - MIXED LIVER INJURY [None]
